FAERS Safety Report 11081532 (Version 1)
Quarter: 2015Q2

REPORT INFORMATION
  Report Type: Report from Study
  Country: US (occurrence: US)
  Receive Date: 20150501
  Receipt Date: 20150501
  Transmission Date: 20150821
  Serious: Yes (Other)
  Sender: FDA-Public Use
  Company Number: US-CELGENEUS-163-21880-12102620

PATIENT
  Age: 74 Year
  Sex: Male
  Weight: 82.63 kg

DRUGS (3)
  1. DECADRON [Suspect]
     Active Substance: DEXAMETHASONE
     Indication: PLASMA CELL MYELOMA
     Route: 048
     Dates: start: 20110921, end: 20120814
  2. DECADRON [Suspect]
     Active Substance: DEXAMETHASONE
     Route: 048
     Dates: start: 20120815, end: 20121012
  3. REVLIMID [Suspect]
     Active Substance: LENALIDOMIDE
     Indication: PLASMA CELL MYELOMA
     Dosage: 5 MILLIGRAM
     Route: 048
     Dates: start: 20120309, end: 20120630

REACTIONS (3)
  - Asthenia [Unknown]
  - Hypotension [Unknown]
  - Fatigue [Recovered/Resolved]

NARRATIVE: CASE EVENT DATE: 20120628
